FAERS Safety Report 7358410-9 (Version None)
Quarter: 2011Q1

REPORT INFORMATION
  Report Type: 
  Country: None (occurrence: None)
  Receive Date: 20110317
  Receipt Date: 20110309
  Transmission Date: 20110831
  Serious: Yes (Other)
  Sender: FDA-Public Use
  Company Number: US-GILEAD-2011-0036974

PATIENT
  Age: 63 Year
  Sex: Female

DRUGS (1)
  1. LETAIRIS [Suspect]
     Indication: PRODUCT USED FOR UNKNOWN INDICATION
     Route: 048
     Dates: start: 20110131

REACTIONS (7)
  - DIZZINESS [None]
  - LIVER FUNCTION TEST ABNORMAL [None]
  - RASH [None]
  - PRURITUS [None]
  - BLINDNESS [None]
  - NAUSEA [None]
  - DEAFNESS [None]
